FAERS Safety Report 6691614-7 (Version None)
Quarter: 2010Q2

REPORT INFORMATION
  Report Type: 
  Country: None (occurrence: None)
  Receive Date: 20100422
  Receipt Date: 20100408
  Transmission Date: 20101027
  Serious: Yes (Hospitalization, Disabling)
  Sender: FDA-Public Use
  Company Number: PHHY2010FR22073

PATIENT
  Sex: Male

DRUGS (8)
  1. GLEEVEC [Suspect]
     Indication: CHRONIC MYELOID LEUKAEMIA
     Dosage: 400 MG, QD
     Dates: start: 20080501
  2. GLEEVEC [Suspect]
     Dosage: 200 MG, QD
     Dates: end: 20081101
  3. GLEEVEC [Suspect]
     Dosage: 400 MG, QD
     Dates: start: 20081101, end: 20081201
  4. GLEEVEC [Suspect]
     Dosage: 200 MG, QD
     Dates: start: 20090301, end: 20090601
  5. UN-ALFA [Concomitant]
  6. CORTANCYL [Concomitant]
  7. CALCIDIA [Concomitant]
  8. LEXOMIL [Concomitant]

REACTIONS (16)
  - ABNORMAL BEHAVIOUR [None]
  - AGITATION [None]
  - AMNESIA [None]
  - ANXIETY [None]
  - CONFUSIONAL STATE [None]
  - CONVULSION [None]
  - DRUG LEVEL INCREASED [None]
  - ENCEPHALITIS [None]
  - EPILEPSY [None]
  - MENINGITIS [None]
  - NERVOUS SYSTEM DISORDER [None]
  - RENAL FAILURE [None]
  - RENAL FAILURE ACUTE [None]
  - SPEECH DISORDER [None]
  - STATUS EPILEPTICUS [None]
  - URAEMIC ENCEPHALOPATHY [None]
